FAERS Safety Report 4374695-5 (Version None)
Quarter: 2004Q2

REPORT INFORMATION
  Report Type: 
  Country: None (occurrence: None)
  Receive Date: 20040604
  Receipt Date: 20040526
  Transmission Date: 20050107
  Serious: Yes (Other)
  Sender: FDA-Public Use
  Company Number: 2004035419

PATIENT
  Age: 47 Year
  Sex: Female

DRUGS (3)
  1. LIPITOR [Suspect]
     Indication: BLOOD CHOLESTEROL INCREASED
     Dosage: 10 MG (10 MG, 1 IN 1 D), ORAL
     Route: 048
     Dates: start: 20031001, end: 20031101
  2. CONJUGATED ESTROGENS [Suspect]
     Indication: ARTIFICIAL MENOPAUSE
     Dosage: ORAL
     Route: 048
     Dates: start: 20031001, end: 20031001
  3. ALL OTHER THERAPEUTIC PRODUCTS (ALL OTHER THERAPEUTIC PRODUCTS) [Concomitant]

REACTIONS (17)
  - ANXIETY [None]
  - BACK PAIN [None]
  - BONE PAIN [None]
  - BRONCHITIS [None]
  - COUGH [None]
  - CYSTITIS INTERSTITIAL [None]
  - DYSPNOEA [None]
  - FACE OEDEMA [None]
  - FLUID OVERLOAD [None]
  - GENERALISED OEDEMA [None]
  - HAEMATOCRIT DECREASED [None]
  - HAEMOGLOBIN DECREASED [None]
  - HYPOTENSION [None]
  - POST PROCEDURAL COMPLICATION [None]
  - RHABDOMYOLYSIS [None]
  - SUTURE RUPTURE [None]
  - TACHYCARDIA [None]
